FAERS Safety Report 8390947-6 (Version None)
Quarter: 2012Q2

REPORT INFORMATION
  Report Type: 
  Country: None (occurrence: None)
  Receive Date: 20120529
  Receipt Date: 20120521
  Transmission Date: 20120825
  Serious: Yes (Other)
  Sender: FDA-Public Use
  Company Number: LB-JNJFOC-20120516609

PATIENT
  Age: 24 Year
  Sex: Male

DRUGS (1)
  1. RISPERDAL CONSTA [Suspect]
     Indication: SCHIZOPHRENIA
     Route: 030
     Dates: start: 20111001, end: 20120301

REACTIONS (4)
  - TREATMENT NONCOMPLIANCE [None]
  - AGGRESSION [None]
  - HOMICIDAL IDEATION [None]
  - DELIRIUM [None]
